FAERS Safety Report 9624398 (Version 1)
Quarter: 2013Q4

REPORT INFORMATION
  Report Type: Spontaneous
  Country: FR (occurrence: FR)
  Receive Date: 20131015
  Receipt Date: 20131015
  Transmission Date: 20140711
  Serious: Yes (Other)
  Sender: FDA-Public Use
  Company Number: FR-GLAXOSMITHKLINE-B0928271A

PATIENT
  Age: 28 Year
  Sex: Male

DRUGS (1)
  1. ARIXTRA [Suspect]
     Indication: PROPHYLAXIS
     Route: 058
     Dates: start: 2013

REACTIONS (2)
  - Haemarthrosis [Unknown]
  - Off label use [Unknown]
